FAERS Safety Report 4930413-0 (Version None)
Quarter: 2006Q1

REPORT INFORMATION
  Report Type: 
  Country: None (occurrence: None)
  Receive Date: 20060118
  Receipt Date: 20051207
  Transmission Date: 20060701
  Serious: No
  Sender: FDA-Public Use
  Company Number: 2005001665

PATIENT
  Age: 74 Year
  Sex: Female

DRUGS (3)
  1. TARCEVA [Suspect]
     Indication: NON-SMALL CELL LUNG CANCER
     Dosage: 100-150 MG (QD), ORAL
     Route: 048
     Dates: start: 20050413, end: 20050725
  2. TARCEVA [Suspect]
     Indication: NON-SMALL CELL LUNG CANCER
     Dosage: 100-150 MG (QD), ORAL
     Route: 048
     Dates: start: 20050825
  3. PAIN MEDICATION [Concomitant]

REACTIONS (4)
  - ALOPECIA [None]
  - DRY SKIN [None]
  - INFECTION [None]
  - NAUSEA [None]
